FAERS Safety Report 7151740-5 (Version None)
Quarter: 2010Q4

REPORT INFORMATION
  Report Type: 
  Country: None (occurrence: None)
  Receive Date: 20101210
  Receipt Date: 20101201
  Transmission Date: 20110411
  Serious: Yes (Death, Other)
  Sender: FDA-Public Use
  Company Number: JP-AMGEN-JPNCT2010003139

PATIENT

DRUGS (30)
  1. PANITUMUMAB [Suspect]
     Indication: COLORECTAL CANCER
     Dosage: 6 MG/KG, Q2WK
     Route: 041
     Dates: start: 20100706, end: 20100706
  2. PANITUMUMAB [Suspect]
     Dosage: 4.2 MG/KG, Q2WK
     Dates: start: 20100809, end: 20100809
  3. PANITUMUMAB [Suspect]
     Dosage: 4.5 MG/KG, Q2WK
     Route: 041
     Dates: start: 20100823, end: 20100823
  4. IRINOTECAN HYDROCHLORIDE [Concomitant]
     Indication: COLORECTAL CANCER
     Route: 041
  5. IRINOTECAN HYDROCHLORIDE [Concomitant]
     Route: 041
  6. IRINOTECAN HYDROCHLORIDE [Concomitant]
     Route: 041
     Dates: end: 20100706
  7. IRINOTECAN HYDROCHLORIDE [Concomitant]
     Route: 041
     Dates: start: 20100726, end: 20100823
  8. TS 1 [Concomitant]
     Indication: COLORECTAL CANCER
     Route: 048
  9. TS 1 [Concomitant]
     Route: 048
  10. TS 1 [Concomitant]
     Route: 048
     Dates: end: 20100706
  11. CORTICOSTEROIDS [Concomitant]
     Indication: PROPHYLAXIS
     Route: 065
  12. OXALIPLATIN [Concomitant]
     Indication: COLORECTAL CANCER
     Route: 041
  13. OXALIPLATIN [Concomitant]
     Route: 041
     Dates: start: 20100726, end: 20100823
  14. FLUOROURACIL [Concomitant]
     Indication: COLORECTAL CANCER
     Route: 040
     Dates: start: 20100726, end: 20100823
  15. FLUOROURACIL [Concomitant]
     Route: 041
     Dates: start: 20100726, end: 20100823
  16. CALCIUM LEVOFOLINATE [Concomitant]
     Indication: COLORECTAL CANCER
     Route: 041
     Dates: start: 20100726, end: 20100823
  17. RAMELTEON [Concomitant]
     Route: 042
  18. DECADRON [Concomitant]
     Route: 042
  19. GRANISETRON HCL [Concomitant]
     Route: 042
  20. LASIX [Concomitant]
     Route: 042
  21. LASIX [Concomitant]
     Route: 048
  22. LASIX [Concomitant]
     Route: 042
  23. LASIX [Concomitant]
     Route: 048
  24. SOLDACTONE [Concomitant]
     Route: 042
  25. ALDACTONE [Concomitant]
     Route: 048
  26. CODEINE PHOSPHATE [Concomitant]
     Route: 048
  27. LOXONIN [Concomitant]
     Route: 048
  28. OMEPRAZOLE [Concomitant]
     Route: 048
  29. MYSLEE [Concomitant]
     Route: 048
  30. AMOBAN [Concomitant]
     Route: 048

REACTIONS (2)
  - COLORECTAL CANCER [None]
  - DERMATITIS ACNEIFORM [None]
